FAERS Safety Report 10601743 (Version 1)
Quarter: 2014Q4

REPORT INFORMATION
  Report Type: Spontaneous
  Country: AU (occurrence: None)
  Receive Date: 20141120
  Receipt Date: 20141120
  Transmission Date: 20150529
  Serious: Yes (Hospitalization)
  Sender: FDA-Public Use
  Company Number: IMP_08161_2014

PATIENT
  Age: 73 Year
  Sex: Male
  Weight: 80 kg

DRUGS (4)
  1. GLICLAZIDE [Concomitant]
     Active Substance: GLICLAZIDE
  2. SOTALOL. [Suspect]
     Active Substance: SOTALOL
     Indication: ATRIAL FLUTTER
     Dosage: 40 MG  ORAL ), (80 MG, FREQUENCY UNKNOWN  ORAL)
     Route: 048
  3. WARFARIN [Concomitant]
     Active Substance: WARFARIN
  4. METFORMIN [Concomitant]
     Active Substance: METFORMIN HYDROCHLORIDE

REACTIONS (5)
  - Bradycardia [None]
  - Chest pain [None]
  - Cardiogenic shock [None]
  - Electrocardiogram QT prolonged [None]
  - Nausea [None]
